FAERS Safety Report 26125655 (Version 1)
Quarter: 2025Q4

REPORT INFORMATION
  Report Type: Spontaneous
  Country: EU (occurrence: EU)
  Receive Date: 20251205
  Receipt Date: 20251205
  Transmission Date: 20260118
  Serious: Yes (Death, Life-Threatening, Disabling, Congenital Anomaly)
  Sender: RANBAXY
  Company Number: EU-EMB-M202406050-1

PATIENT
  Sex: Female
  Weight: 0.475 kg

DRUGS (2)
  1. CITALOPRAM [Suspect]
     Active Substance: CITALOPRAM
     Indication: Depression
     Dosage: UNK
     Route: 064
  2. QUETIAPINE [Suspect]
     Active Substance: QUETIAPINE
     Indication: Depression
     Dosage: UNK
     Route: 064

REACTIONS (8)
  - Rectal atresia [Fatal]
  - Caudal regression syndrome [Fatal]
  - Sirenomelia [Fatal]
  - Anal atresia [Fatal]
  - Developmental hip dysplasia [Not Recovered/Not Resolved]
  - Renal aplasia [Fatal]
  - Intestinal malrotation [Not Recovered/Not Resolved]
  - Foetal exposure during pregnancy [Unknown]
